FAERS Safety Report 8504457-6 (Version None)
Quarter: 2012Q3

REPORT INFORMATION
  Report Type: 
  Country: None (occurrence: None)
  Receive Date: 20120711
  Receipt Date: 20120629
  Transmission Date: 20120928
  Serious: Yes (Hospitalization)
  Sender: FDA-Public Use
  Company Number: FR-ELI_LILLY_AND_COMPANY-FR201207000565

PATIENT
  Age: 42 Year
  Sex: Female

DRUGS (5)
  1. METFORMIN HCL [Concomitant]
     Indication: TYPE 2 DIABETES MELLITUS
  2. ACETAMINOPHEN AND TRAMADOL HCL [Concomitant]
  3. BYETTA [Suspect]
     Indication: TYPE 2 DIABETES MELLITUS
     Dosage: 10 UG, BID
     Route: 058
     Dates: start: 20100101, end: 20120601
  4. ONGLYZA [Concomitant]
     Indication: TYPE 2 DIABETES MELLITUS
  5. TRAMADOL HCL [Concomitant]

REACTIONS (4)
  - HYPERTENSION [None]
  - SYNCOPE [None]
  - HYPERGLYCAEMIA [None]
  - LIVER INJURY [None]
